APPROVED DRUG PRODUCT: DEXTROAMPHETAMINE SULFATE
Active Ingredient: DEXTROAMPHETAMINE SULFATE
Strength: 5MG
Dosage Form/Route: TABLET;ORAL
Application: A206095 | Product #001
Applicant: TRIS PHARMA INC
Approved: Aug 18, 2022 | RLD: No | RS: No | Type: DISCN